FAERS Safety Report 12638482 (Version 1)
Quarter: 2016Q3

REPORT INFORMATION
  Report Type: Spontaneous
  Country: US (occurrence: US)
  Receive Date: 20160809
  Receipt Date: 20160809
  Transmission Date: 20161109
  Serious: No
  Sender: FDA-Public Use
  Company Number: US-SA-2016SA131281

PATIENT
  Age: 71 Year
  Sex: Male

DRUGS (2)
  1. PRALUENT [Suspect]
     Active Substance: ALIROCUMAB
     Indication: BLOOD CHOLESTEROL
     Route: 065
     Dates: start: 201606
  2. ALIROCUMAB PREFILLED PEN [Concomitant]
     Active Substance: ALIROCUMAB
     Indication: BLOOD CHOLESTEROL
     Dates: start: 201606

REACTIONS (3)
  - Joint swelling [Not Recovered/Not Resolved]
  - Fall [Not Recovered/Not Resolved]
  - Joint stiffness [Not Recovered/Not Resolved]
